FAERS Safety Report 13005884 (Version 1)
Quarter: 2016Q4

REPORT INFORMATION
  Report Type: Spontaneous
  Country: BR (occurrence: BR)
  Receive Date: 20161207
  Receipt Date: 20161207
  Transmission Date: 20170207
  Serious: Yes (Hospitalization)
  Sender: FDA-Public Use
  Company Number: BR-SA-2016SA218510

PATIENT
  Sex: Female

DRUGS (4)
  1. PREDNISONE. [Concomitant]
     Active Substance: PREDNISONE
     Route: 065
     Dates: start: 2013, end: 201607
  2. ALDOMET [Suspect]
     Active Substance: METHYLDOPA
     Indication: RHEUMATOID ARTHRITIS
     Dosage: DOSA AND FREQ: ON SATURDAYS AND SUNDAYS, TWO TABLETS AT MORNING AND AT NIGHT
     Route: 065
     Dates: start: 2013, end: 201607
  3. FOLIC ACID. [Concomitant]
     Active Substance: FOLIC ACID
     Route: 065
     Dates: start: 2013, end: 201607
  4. LEFLUNOMIDE. [Suspect]
     Active Substance: LEFLUNOMIDE
     Indication: PAIN
     Route: 065
     Dates: start: 2013, end: 201607

REACTIONS (7)
  - Hepatomegaly [Recovered/Resolved]
  - Posture abnormal [Not Recovered/Not Resolved]
  - Pain [Not Recovered/Not Resolved]
  - Anaemia [Recovered/Resolved]
  - Hepatitis [Recovered/Resolved]
  - Malaise [Not Recovered/Not Resolved]
  - Abdominal distension [Recovered/Resolved]
